FAERS Safety Report 17098079 (Version 1)
Quarter: 2019Q4

REPORT INFORMATION
  Report Type: Spontaneous
  Country: CA (occurrence: CA)
  Receive Date: 20191202
  Receipt Date: 20191202
  Transmission Date: 20200122
  Serious: Yes (Hospitalization)
  Sender: FDA-Public Use
  Company Number: CA-ROCHE-2478858

PATIENT
  Age: 70 Year
  Sex: Female

DRUGS (25)
  1. PERJETA [Suspect]
     Active Substance: PERTUZUMAB
     Indication: HER-2 POSITIVE BREAST CANCER
     Dosage: 14ML VIAL - CONCENTRATE SOL.
     Route: 042
  2. SODIUM CHLORIDE. [Suspect]
     Active Substance: SODIUM CHLORIDE
     Indication: PRODUCT USED FOR UNKNOWN INDICATION
     Route: 065
  3. CANESTEN [Concomitant]
     Active Substance: CLOTRIMAZOLE
     Indication: PRODUCT USED FOR UNKNOWN INDICATION
     Route: 065
  4. NAPROSYN [Concomitant]
     Active Substance: NAPROXEN
  5. EPIRUBICIN HYDROCHLORIDE. [Suspect]
     Active Substance: EPIRUBICIN HYDROCHLORIDE
     Indication: HER-2 POSITIVE BREAST CANCER
     Route: 042
  6. ATIVAN [Concomitant]
     Active Substance: LORAZEPAM
     Indication: PRODUCT USED FOR UNKNOWN INDICATION
     Route: 065
  7. TYLENOL [Concomitant]
     Active Substance: ACETAMINOPHEN
  8. PROCYTOX [Suspect]
     Active Substance: CYCLOPHOSPHAMIDE
     Indication: HER-2 POSITIVE BREAST CANCER
     Route: 065
  9. EMEND [Concomitant]
     Active Substance: APREPITANT
     Route: 065
  10. STEMETIL [PROCHLORPERAZINE] [Concomitant]
     Active Substance: PROCHLORPERAZINE
  11. SYNTHROID [Concomitant]
     Active Substance: LEVOTHYROXINE SODIUM
  12. DOCETAXEL. [Suspect]
     Active Substance: DOCETAXEL
     Route: 042
  13. GRANISETRON HYDROCHLORIDE. [Concomitant]
     Active Substance: GRANISETRON HYDROCHLORIDE
  14. SALMO SALAR OIL [Concomitant]
     Active Substance: ATLANTIC SALMON OIL
  15. TRASTUZUMAB. [Suspect]
     Active Substance: TRASTUZUMAB
     Route: 042
  16. DOCETAXEL. [Suspect]
     Active Substance: DOCETAXEL
     Indication: HER-2 POSITIVE BREAST CANCER
     Route: 042
  17. COLACE [Concomitant]
     Active Substance: DOCUSATE SODIUM
     Indication: PRODUCT USED FOR UNKNOWN INDICATION
     Route: 065
  18. IMOVANE [Concomitant]
     Active Substance: ZOPICLONE
     Route: 065
  19. ZINCOFAX [Concomitant]
     Active Substance: ZINC OXIDE
  20. PERJETA [Suspect]
     Active Substance: PERTUZUMAB
     Route: 042
  21. DILAUDID [Concomitant]
     Active Substance: HYDROMORPHONE HYDROCHLORIDE
     Indication: PRODUCT USED FOR UNKNOWN INDICATION
     Route: 065
  22. TRASTUZUMAB. [Suspect]
     Active Substance: TRASTUZUMAB
     Indication: HER-2 POSITIVE BREAST CANCER
     Route: 042
  23. EFUDEX [Suspect]
     Active Substance: FLUOROURACIL
     Indication: HER-2 POSITIVE BREAST CANCER
     Route: 065
  24. DECADRON [Concomitant]
     Active Substance: DEXAMETHASONE
     Indication: PRODUCT USED FOR UNKNOWN INDICATION
     Route: 065
  25. MOXIFLOXACIN. [Concomitant]
     Active Substance: MOXIFLOXACIN

REACTIONS (1)
  - Febrile neutropenia [Recovered/Resolved]
